FAERS Safety Report 5795673-5 (Version None)
Quarter: 2008Q2

REPORT INFORMATION
  Report Type: 
  Country: None (occurrence: None)
  Receive Date: 20080630
  Receipt Date: 20080623
  Transmission Date: 20081010
  Serious: Yes (Other)
  Sender: FDA-Public Use
  Company Number: GB-PFIZER INC-2008053824

PATIENT
  Age: 29 Year
  Sex: Female
  Weight: 64 kg

DRUGS (3)
  1. CHANTIX [Suspect]
     Indication: SMOKING CESSATION THERAPY
     Route: 048
     Dates: start: 20071221, end: 20080201
  2. FLOXACILLIN SODIUM [Concomitant]
     Route: 048
     Dates: start: 20080101, end: 20080108
  3. TRIMETHOPRIM [Concomitant]
     Route: 048
     Dates: start: 20071010, end: 20071012

REACTIONS (2)
  - INTENTIONAL SELF-INJURY [None]
  - MOOD SWINGS [None]
